FAERS Safety Report 4659196-9 (Version None)
Quarter: 2005Q2

REPORT INFORMATION
  Report Type: 
  Country: None (occurrence: None)
  Receive Date: 20050510
  Receipt Date: 20050427
  Transmission Date: 20051028
  Serious: Yes (Death, Hospitalization)
  Sender: FDA-Public Use
  Company Number: APP200500210

PATIENT
  Age: 75 Year
  Sex: Male
  Weight: 70.0354 kg

DRUGS (8)
  1. FLUOROURACIL [Suspect]
     Indication: BILIARY NEOPLASM
     Dosage: 375 MG/M2, (375 MG/M2, QDAYX5D), INTRAVENOUS
     Route: 042
     Dates: start: 20050110, end: 20050318
  2. LEUCOVORIN CALCIUM [Suspect]
     Indication: BILIARY NEOPLASM
     Dosage: 25 MG/M2 (25 MG/M2, QDAYX5D)
     Dates: start: 20050110, end: 20050318
  3. IRON (IRON) [Concomitant]
  4. METOPROLOL TARTRATE [Concomitant]
  5. ZOFRAN [Concomitant]
  6. ASPIRIN [Concomitant]
  7. COMPAZINE [Concomitant]
  8. HEPARIN [Concomitant]

REACTIONS (18)
  - ATRIAL FIBRILLATION [None]
  - BILIARY CANCER METASTATIC [None]
  - CONFUSIONAL STATE [None]
  - DEPRESSED LEVEL OF CONSCIOUSNESS [None]
  - DIARRHOEA [None]
  - FALL [None]
  - FLUID RETENTION [None]
  - HYPERNATRAEMIA [None]
  - HYPOGLYCAEMIA [None]
  - HYPOTENSION [None]
  - MENTAL IMPAIRMENT [None]
  - METABOLIC ACIDOSIS [None]
  - METASTASES TO LUNG [None]
  - NEUTROPENIC SEPSIS [None]
  - PANCYTOPENIA [None]
  - RALES [None]
  - RHONCHI [None]
  - WEIGHT INCREASED [None]
